FAERS Safety Report 4721824-7 (Version None)
Quarter: 2005Q3

REPORT INFORMATION
  Report Type: 
  Country: None (occurrence: None)
  Receive Date: 20050721
  Receipt Date: 20050429
  Transmission Date: 20060218
  Serious: No
  Sender: FDA-Public Use
  Company Number: US-BRISTOL-MYERS SQUIBB COMPANY-12951703

PATIENT
  Age: 78 Year
  Sex: Male
  Weight: 77 kg

DRUGS (12)
  1. COUMADIN [Suspect]
     Indication: CARDIAC PACEMAKER INSERTION
     Dosage: 2.5 MG DAILY ON FRIDAY, 5 MG SATURDAY THROUGH THURSDAY
     Dates: start: 20030101
  2. ACCUPRIL [Concomitant]
  3. ASPIRIN [Concomitant]
  4. COREG [Concomitant]
  5. FLOMAX [Concomitant]
  6. GLUCOTROL [Concomitant]
  7. IMDUR [Concomitant]
  8. LANOXIN [Concomitant]
  9. LASIX [Concomitant]
  10. MAGNESIUM [Concomitant]
  11. NIASPAN [Concomitant]
  12. SPIRONOLACTONE [Concomitant]

REACTIONS (2)
  - INTERNATIONAL NORMALISED RATIO FLUCTUATION [None]
  - RASH MACULAR [None]
